FAERS Safety Report 17518313 (Version 1)
Quarter: 2020Q1

REPORT INFORMATION
  Report Type: Report from Study
  Country: US (occurrence: US)
  Receive Date: 20200309
  Receipt Date: 20200309
  Transmission Date: 20200409
  Serious: Yes (Death, Other)
  Sender: FDA-Public Use
  Company Number: US-ASTRAZENECA-2020SE33972

PATIENT
  Age: 31811 Day
  Sex: Female

DRUGS (14)
  1. ZITHROMAX [Concomitant]
     Active Substance: AZITHROMYCIN DIHYDRATE
     Indication: INFECTION
  2. VITAMINS [Concomitant]
     Active Substance: VITAMINS
  3. TAGRISSO [Suspect]
     Active Substance: OSIMERTINIB
     Indication: SMALL CELL LUNG CANCER
     Route: 048
  4. ALPRAZOLAM. [Concomitant]
     Active Substance: ALPRAZOLAM
     Indication: NERVE INJURY
  5. ACIFLUX [Concomitant]
     Indication: ABDOMINAL DISCOMFORT
  6. ZIOPTAN [Concomitant]
     Active Substance: TAFLUPROST
  7. PHILLIPS STOOL SOFTENER BULK DOCUSATE [Concomitant]
     Active Substance: DOCUSATE SODIUM
  8. GLUCOSAMINE [Concomitant]
     Active Substance: GLUCOSAMINE
     Indication: ARTHRALGIA
  9. GAS-X [Concomitant]
     Active Substance: DIMETHICONE
     Indication: GASTROINTESTINAL DISORDER
  10. TYLENOL [Concomitant]
     Active Substance: ACETAMINOPHEN
     Indication: HEADACHE
     Dosage: AS REQUIRED
  11. PHILLIPS STOOL SOFTENER BULK DOCUSATE [Concomitant]
     Active Substance: DOCUSATE SODIUM
  12. TAGRISSO [Suspect]
     Active Substance: OSIMERTINIB
     Indication: SMALL CELL LUNG CANCER
     Route: 048
  13. CHONDROITIN [Concomitant]
     Active Substance: CHONDROITIN
     Indication: ARTHRALGIA
  14. ALIGN PROBIOTIC [Concomitant]

REACTIONS (12)
  - Cerebrovascular accident [Unknown]
  - Gastrointestinal disorder [Unknown]
  - Wrong technique in product usage process [Unknown]
  - Death [Fatal]
  - Malaise [Unknown]
  - Fall [Unknown]
  - Dysgraphia [Unknown]
  - Asthenia [Unknown]
  - Tumour marker increased [Unknown]
  - Dysphonia [Unknown]
  - Arthralgia [Unknown]
  - Insurance issue [Unknown]

NARRATIVE: CASE EVENT DATE: 20200221
